FAERS Safety Report 16129910 (Version 1)
Quarter: 2019Q1

REPORT INFORMATION
  Report Type: Spontaneous
  Country: US (occurrence: US)
  Receive Date: 20190328
  Receipt Date: 20190328
  Transmission Date: 20190418
  Serious: No
  Sender: FDA-Public Use
  Company Number: US-ASTRAZENECA-2019SE19301

PATIENT

DRUGS (1)
  1. BYDUREON BCISE [Suspect]
     Active Substance: EXENATIDE
     Indication: RESPIRATORY DISORDER
     Dosage: UNKNOWN DOSE OF FREQUENCY
     Route: 058

REACTIONS (1)
  - Diarrhoea [Unknown]
